FAERS Safety Report 8607166-8 (Version None)
Quarter: 2012Q3

REPORT INFORMATION
  Report Type: 
  Country: None (occurrence: None)
  Receive Date: 20120821
  Receipt Date: 20120813
  Transmission Date: 20120928
  Serious: No
  Sender: FDA-Public Use
  Company Number: US-BIOGENIDEC-2012BI031439

PATIENT
  Age: 41 Year
  Sex: Female

DRUGS (1)
  1. TYSABRI [Suspect]
     Indication: MULTIPLE SCLEROSIS
     Route: 042
     Dates: start: 20100810, end: 20120425

REACTIONS (5)
  - MULTIPLE SCLEROSIS RELAPSE [None]
  - EATING DISORDER [None]
  - FALL [None]
  - GASTROINTESTINAL MOTILITY DISORDER [None]
  - GAIT DISTURBANCE [None]
